FAERS Safety Report 8459197-9 (Version None)
Quarter: 2012Q2

REPORT INFORMATION
  Report Type: 
  Country: None (occurrence: None)
  Receive Date: 20120622
  Receipt Date: 20120618
  Transmission Date: 20120825
  Serious: Yes (Death, Hospitalization)
  Sender: FDA-Public Use
  Company Number: US-ASTRAZENECA-2007UW00341

PATIENT
  Age: 31795 Day
  Sex: Female
  Weight: 61.2 kg

DRUGS (20)
  1. FLUCONAZOLE [Concomitant]
     Route: 048
  2. DILTIAZEM HYDROCHOLORIDE [Concomitant]
  3. IPRATROPIN [Concomitant]
  4. ATIVAN [Concomitant]
  5. DIFLUCAN [Concomitant]
  6. LOTRISONE [Concomitant]
  7. DIOVAN [Concomitant]
  8. ASPIRIN [Concomitant]
  9. PULMICORT [Concomitant]
  10. MEDROL [Concomitant]
  11. LOPENEX [Concomitant]
  12. PREDRINE [Concomitant]
     Route: 048
     Dates: start: 20050213
  13. SYNTHROID [Concomitant]
  14. CLONIDINE [Concomitant]
  15. PROTONIX [Concomitant]
  16. BUSPAR [Concomitant]
  17. HALDOL [Concomitant]
     Route: 048
     Dates: start: 20050214
  18. SEROQUEL [Suspect]
     Indication: HYPOTHYROIDISM
     Route: 048
     Dates: start: 20050214, end: 20050308
  19. RISPERDAL [Concomitant]
  20. LOVENOX [Concomitant]

REACTIONS (13)
  - HEPATIC NECROSIS [None]
  - DELIRIUM [None]
  - OBSTRUCTIVE AIRWAYS DISORDER [None]
  - SEPSIS [None]
  - ACUTE PULMONARY OEDEMA [None]
  - PNEUMONIA [None]
  - COGNITIVE DISORDER [None]
  - PULMONARY HAEMORRHAGE [None]
  - ACUTE RIGHT VENTRICULAR FAILURE [None]
  - MITRAL VALVE DISEASE [None]
  - SEPTIC SHOCK [None]
  - ATRIAL FIBRILLATION [None]
  - RENAL FAILURE ACUTE [None]
